FAERS Safety Report 10110960 (Version 3)
Quarter: 2015Q2

REPORT INFORMATION
  Report Type: Spontaneous
  Country: US (occurrence: None)
  Receive Date: 20140421
  Receipt Date: 20150420
  Transmission Date: 20150821
  Serious: Yes (Other)
  Sender: FDA-Public Use
  Company Number: AEGR000324

PATIENT
  Age: 68 Year
  Sex: Male
  Weight: 77.1 kg

DRUGS (11)
  1. JUXTAPID [Suspect]
     Active Substance: LOMITAPIDE MESYLATE
     Indication: TYPE IIA HYPERLIPIDAEMIA
     Route: 048
     Dates: start: 20140104, end: 2014
  2. COENZYME Q10 (UBIDECARENONE) [Concomitant]
  3. MULTIVITAMIN (VITAMINS NOS) [Concomitant]
     Active Substance: VITAMINS
  4. LYSINE [Concomitant]
     Active Substance: LYSINE
  5. GLUCOSAMINE CHONDROITIN (CHONDROITIN SULFATE, GLUCOSAMINE) [Concomitant]
  6. ALBUTEROL (SALBUTAMOL SULFATE) [Concomitant]
  7. ATENOLOL. [Concomitant]
     Active Substance: ATENOLOL
  8. OMEPRAZOLE. [Concomitant]
     Active Substance: OMEPRAZOLE
  9. VITAMIN E (TOCOPHERYL ACETATE) [Concomitant]
  10. OMEGA 3 6 9 (OMEGA 9 FATTY ACIDS, OMEGA-3 FATTY ACIDS, OMEGA-6 FATTY ACIDS) [Concomitant]
  11. BABY ASPIRIN (ACETYLSALICYLIC ACID) [Concomitant]
     Active Substance: ASPIRIN

REACTIONS (10)
  - Weight decreased [None]
  - Diarrhoea [None]
  - Amnesia [None]
  - Decreased appetite [None]
  - Muscle atrophy [None]
  - Neck pain [None]
  - Inappropriate schedule of drug administration [None]
  - Therapy cessation [None]
  - Blood creatine phosphokinase increased [None]
  - Muscular weakness [None]

NARRATIVE: CASE EVENT DATE: 2014
